FAERS Safety Report 7280595-3 (Version None)
Quarter: 2011Q1

REPORT INFORMATION
  Report Type: 
  Country: None (occurrence: None)
  Receive Date: 20110126
  Receipt Date: 20110111
  Transmission Date: 20110831
  Serious: Yes (Hospitalization)
  Sender: FDA-Public Use
  Company Number: 2011000159

PATIENT
  Age: 64 Year
  Sex: Female

DRUGS (5)
  1. TARCEVA [Suspect]
     Indication: NON-SMALL CELL LUNG CANCER
     Dosage: (150 MG,DAILY),ORAL ; (150 MG,DAILY),ORAL
     Route: 048
     Dates: start: 20060701, end: 20101101
  2. TARCEVA [Suspect]
     Indication: NON-SMALL CELL LUNG CANCER
     Dosage: (150 MG,DAILY),ORAL ; (150 MG,DAILY),ORAL
     Route: 048
     Dates: start: 20101101
  3. NIFEDIPINE XR (NIFEDIPINE) [Concomitant]
  4. LASIX [Concomitant]
  5. POTASSIUM CHLORIDE [Concomitant]

REACTIONS (5)
  - WEIGHT DECREASED [None]
  - RASH [None]
  - NAUSEA [None]
  - PULMONARY EMBOLISM [None]
  - APHAGIA [None]
